FAERS Safety Report 15167110 (Version 1)
Quarter: 2018Q3

REPORT INFORMATION
  Report Type: Report from Study
  Country: US (occurrence: US)
  Receive Date: 20180719
  Receipt Date: 20180719
  Transmission Date: 20181010
  Serious: Yes (Death)
  Sender: FDA-Public Use
  Company Number: PHEH2018US029788

PATIENT
  Age: 67 Year
  Sex: Male

DRUGS (1)
  1. JADENU [Suspect]
     Active Substance: DEFERASIROX
     Indication: PRODUCT USED FOR UNKNOWN INDICATION
     Dosage: 360 MG, UNK
     Route: 048
     Dates: start: 20180715

REACTIONS (1)
  - Death [Fatal]

NARRATIVE: CASE EVENT DATE: 20180715
